FAERS Safety Report 19966334 (Version 1)
Quarter: 2021Q4

REPORT INFORMATION
  Report Type: Report from Study
  Country: BE (occurrence: BE)
  Receive Date: 20211018
  Receipt Date: 20211018
  Transmission Date: 20220303
  Serious: Yes (Other)
  Sender: FDA-Public Use
  Company Number: BE-TEVA-2021-BE-1880110

PATIENT
  Age: 46 Year
  Sex: Female

DRUGS (4)
  1. COPAXONE [Suspect]
     Active Substance: GLATIRAMER ACETATE
     Indication: Multiple sclerosis
     Route: 065
     Dates: start: 20190712, end: 20210203
  2. COPAXONE [Suspect]
     Active Substance: GLATIRAMER ACETATE
  3. COPAXONE [Suspect]
     Active Substance: GLATIRAMER ACETATE
     Route: 065
     Dates: start: 20210222, end: 20210305
  4. COPAXONE [Suspect]
     Active Substance: GLATIRAMER ACETATE

REACTIONS (14)
  - Erythema [Unknown]
  - Skin swelling [Unknown]
  - Pruritus [Unknown]
  - Angioedema [Unknown]
  - Eye movement disorder [Unknown]
  - Dyskinesia [Unknown]
  - Injection site mass [Not Recovered/Not Resolved]
  - Chest discomfort [Unknown]
  - Headache [Unknown]
  - Ear swelling [Recovering/Resolving]
  - Erythema [Recovering/Resolving]
  - Feeling hot [Recovering/Resolving]
  - Lip swelling [Recovering/Resolving]
  - Dyspnoea [Unknown]

NARRATIVE: CASE EVENT DATE: 20210101
